FAERS Safety Report 8443782-4 (Version None)
Quarter: 2012Q2

REPORT INFORMATION
  Report Type: 
  Country: None (occurrence: None)
  Receive Date: 20120618
  Receipt Date: 20120607
  Transmission Date: 20120825
  Serious: Yes (Other)
  Sender: FDA-Public Use
  Company Number: FR-US-EMD SERONO, INC.-7138626

PATIENT
  Sex: Female

DRUGS (2)
  1. CHORIONIC GONADOTROPIN [Suspect]
     Indication: IN VITRO FERTILISATION
     Route: 058
  2. GONAL-F [Suspect]
     Indication: IN VITRO FERTILISATION
     Route: 058

REACTIONS (2)
  - MALAISE [None]
  - OVARIAN HYPERSTIMULATION SYNDROME [None]
